FAERS Safety Report 17652354 (Version 2)
Quarter: 2020Q2

REPORT INFORMATION
  Report Type: Spontaneous
  Country: TW (occurrence: TW)
  Receive Date: 20200409
  Receipt Date: 20200424
  Transmission Date: 20200713
  Serious: Yes (Life-Threatening, Hospitalization)
  Sender: FDA-Public Use
  Company Number: TW-ABBVIE-20K-153-3357067-00

PATIENT
  Age: 72 Year
  Sex: Female

DRUGS (1)
  1. MAVIRET [Suspect]
     Active Substance: GLECAPREVIR\PIBRENTASVIR
     Indication: PRODUCT USED FOR UNKNOWN INDICATION
     Route: 048
     Dates: start: 20200324

REACTIONS (5)
  - Loss of consciousness [Recovered/Resolved]
  - Child-Pugh-Turcotte score increased [Unknown]
  - Muscle twitching [Unknown]
  - Hepatic encephalopathy [Unknown]
  - Ammonia increased [Unknown]

NARRATIVE: CASE EVENT DATE: 20200406
